FAERS Safety Report 6849948-9 (Version None)
Quarter: 2010Q3

REPORT INFORMATION
  Report Type: 
  Country: None (occurrence: None)
  Receive Date: 20100716
  Receipt Date: 20080318
  Transmission Date: 20110219
  Serious: No
  Sender: FDA-Public Use
  Company Number: US-PFIZER INC-2007085199

PATIENT
  Sex: Male
  Weight: 81.8 kg

DRUGS (4)
  1. CHANTIX [Suspect]
     Indication: SMOKING CESSATION THERAPY
     Dates: start: 20060901, end: 20070101
  2. INSULIN [Concomitant]
     Indication: TYPE 1 DIABETES MELLITUS
  3. ALTACE [Concomitant]
     Indication: HYPERTENSION
  4. LAMISIL [Concomitant]

REACTIONS (1)
  - APATHY [None]
